FAERS Safety Report 9542062 (Version 4)
Quarter: 2013Q4

REPORT INFORMATION
  Report Type: Report from Study
  Country: US (occurrence: US)
  Receive Date: 20130923
  Receipt Date: 20131022
  Transmission Date: 20140711
  Serious: Yes (Other)
  Sender: FDA-Public Use
  Company Number: US-IPSEN BIOPHARMACEUTICALS, INC.-2013-3182

PATIENT
  Age: 70 Year
  Sex: Male

DRUGS (4)
  1. SOMATULINE DEPOT INJECTION (60MG) [Suspect]
     Indication: PITUITARY TUMOUR
     Dosage: 60 MG
     Route: 058
     Dates: start: 20130727
  2. DIGOXIN [Concomitant]
     Indication: PRODUCT USED FOR UNKNOWN INDICATION
     Dosage: NOT REPORTED
     Route: 065
  3. METOPROLOL [Concomitant]
     Indication: PRODUCT USED FOR UNKNOWN INDICATION
     Dosage: NOT REPORTED
     Route: 065
  4. LISINOPRIL [Concomitant]
     Indication: PRODUCT USED FOR UNKNOWN INDICATION
     Dosage: NOT REPORTED
     Route: 065

REACTIONS (2)
  - Bladder neoplasm [Unknown]
  - Diarrhoea [Recovered/Resolved]
